FAERS Safety Report 9423507 (Version 5)
Quarter: 2017Q3

REPORT INFORMATION
  Report Type: Spontaneous
  Country: JP (occurrence: JP)
  Receive Date: 20130726
  Receipt Date: 20170926
  Transmission Date: 20171128
  Serious: Yes (Hospitalization)
  Sender: FDA-Public Use
  Company Number: JP-B.I. PHARMACEUTICALS,INC./RIDGEFIELD-2013-BI-21618JT

PATIENT
  Age: 84 Year
  Sex: Female

DRUGS (34)
  1. MAGMITT [Concomitant]
     Active Substance: MAGNESIUM OXIDE
     Indication: CONSTIPATION
     Route: 048
     Dates: end: 20130702
  2. TOCLASE [Concomitant]
     Active Substance: PENTOXYVERINE
     Indication: COUGH
     Route: 048
     Dates: start: 20130627, end: 20130702
  3. LANSOPRAZOLE. [Concomitant]
     Active Substance: LANSOPRAZOLE
     Indication: CHRONIC GASTRITIS
     Route: 048
     Dates: start: 20130702, end: 20130708
  4. REBAMIPIDE [Concomitant]
     Active Substance: REBAMIPIDE
     Indication: CHRONIC GASTRITIS
     Route: 048
     Dates: start: 20130710
  5. ADOFEED [Concomitant]
     Active Substance: FLURBIPROFEN
     Indication: BACK PAIN
     Route: 065
     Dates: start: 20130630
  6. SULPERAZON / SULBACTAM SODIUM_CEFOPERAZONE SODIUM [Concomitant]
     Indication: CHOLANGITIS
     Route: 065
     Dates: start: 20130701
  7. SORENTMIN [Concomitant]
     Active Substance: BROTIZOLAM
     Indication: INSOMNIA
     Route: 048
     Dates: end: 20130708
  8. EDIROL [Concomitant]
     Active Substance: ELDECALCITOL
     Indication: OSTEOPOROSIS
     Route: 048
     Dates: start: 20130626, end: 20130702
  9. ATARAX-P [Concomitant]
     Active Substance: HYDROXYZINE HYDROCHLORIDE
     Indication: INSOMNIA
     Route: 048
     Dates: start: 20130709
  10. PRIMPERAN [Concomitant]
     Active Substance: METOCLOPRAMIDE HYDROCHLORIDE
     Indication: NAUSEA
     Route: 065
     Dates: start: 20130626, end: 20130626
  11. BILISCOPIN [Concomitant]
     Active Substance: IOTROXATE MEGLUMINE
     Indication: SCAN WITH CONTRAST
     Route: 065
     Dates: start: 20130702, end: 20130702
  12. CODEINE / CODEINE PHOSPHATE HYDRATE [Concomitant]
     Indication: COUGH
     Route: 048
  13. PRADAXA [Suspect]
     Active Substance: DABIGATRAN ETEXILATE MESYLATE
     Indication: DEEP VEIN THROMBOSIS
     Route: 048
     Dates: start: 20130625, end: 20130709
  14. AMLODIN [Concomitant]
     Active Substance: AMLODIPINE BESYLATE
     Indication: HYPERTENSION
     Route: 048
     Dates: end: 20130702
  15. MERISLON [Concomitant]
     Active Substance: BETAHISTINE MESILATE
     Indication: DIZZINESS
     Route: 048
     Dates: start: 20130702, end: 20130706
  16. ELCITONIN [Concomitant]
     Active Substance: ELCATONIN
     Indication: OSTEOPOROSIS
     Route: 042
     Dates: start: 20130626
  17. BFLUID(MIXED AMINO ACID_CARBOHYDRATE_ELECTROLYTE_VITAMIN COMBINE) [Concomitant]
     Indication: DECREASED APPETITE
     Dosage: ROUTE IS DR
     Route: 065
     Dates: start: 20130708, end: 20130708
  18. ZANTAC [Concomitant]
     Active Substance: RANITIDINE HYDROCHLORIDE
     Indication: CHRONIC GASTRITIS
     Route: 048
     Dates: start: 20130710
  19. GASRICK D [Concomitant]
     Active Substance: FAMOTIDINE
     Indication: CHRONIC GASTRITIS
     Route: 048
     Dates: end: 20130702
  20. ASPARA-CA [Concomitant]
     Active Substance: CALCIUM ASPARTATE
     Indication: OSTEOPOROSIS
     Route: 048
     Dates: start: 20130626, end: 20130702
  21. ASVERIN (TIPEPIDINE HIBENZATE) [Concomitant]
     Active Substance: TIPEPIDINE HIBENZATE
     Indication: COUGH
     Route: 048
     Dates: start: 20130702, end: 20130708
  22. MEYLON [Concomitant]
     Active Substance: SODIUM BICARBONATE
     Indication: DIZZINESS
     Route: 042
     Dates: start: 20130628, end: 20130701
  23. CALONAL [Suspect]
     Active Substance: ACETAMINOPHEN
     Indication: PAIN
     Route: 048
     Dates: start: 20130702, end: 20130708
  24. BFLUID [Concomitant]
     Active Substance: AMINO ACIDS\DEXTROSE\ELECTROLYTES NOS\VITAMINS
     Route: 065
     Dates: start: 20130628, end: 20130708
  25. OYPALOMIN [Concomitant]
     Active Substance: IOPAMIDOL
     Indication: SCAN WITH CONTRAST
     Route: 042
     Dates: start: 20130701, end: 20130701
  26. LASIX [Concomitant]
     Active Substance: FUROSEMIDE
     Indication: CARDIAC FAILURE
     Route: 065
     Dates: start: 20130706, end: 20130708
  27. LAC-B [Concomitant]
     Active Substance: BIFIDOBACTERIUM SPP.
     Indication: DIARRHOEA
     Route: 048
     Dates: start: 20130710
  28. BFLUID [Concomitant]
     Active Substance: AMINO ACIDS\DEXTROSE\ELECTROLYTES NOS\VITAMINS
     Indication: DECREASED APPETITE
     Route: 065
     Dates: start: 20130626, end: 20130626
  29. CELECOX [Suspect]
     Active Substance: CELECOXIB
     Indication: PAIN
     Route: 048
     Dates: end: 20130702
  30. SUNRYTHM [Concomitant]
     Active Substance: PILSICAINIDE HYDROCHLORIDE
     Indication: ATRIAL FIBRILLATION
     Route: 048
     Dates: end: 20130702
  31. K- SUPPLY [Concomitant]
     Indication: HYPOKALAEMIA
     Route: 048
     Dates: start: 20130706, end: 20130710
  32. MUCOSOLVAN L [Concomitant]
     Active Substance: AMBROXOL HYDROCHLORIDE
     Indication: SPUTUM RETENTION
     Route: 048
     Dates: end: 20130702
  33. TSUMURA DAIKENCHUTO EXTRACT GRANULES FOR ETHICAL USE / DAIKENCHUTO [Concomitant]
     Indication: CONSTIPATION
     Route: 048
     Dates: start: 20130702, end: 20130708
  34. URSO [Concomitant]
     Active Substance: URSODIOL
     Indication: JAUNDICE
     Route: 048
     Dates: start: 20130702, end: 20130708

REACTIONS (12)
  - Hyponatraemia [Not Recovered/Not Resolved]
  - Occult blood [Not Recovered/Not Resolved]
  - Drug eruption [Recovered/Resolved]
  - Cholelithiasis [Not Recovered/Not Resolved]
  - Diarrhoea [Not Recovered/Not Resolved]
  - Dizziness [Not Recovered/Not Resolved]
  - Anal skin tags [Not Recovered/Not Resolved]
  - Hepatic cyst [Not Recovered/Not Resolved]
  - Dizziness [Not Recovered/Not Resolved]
  - Drug-induced liver injury [Recovered/Resolved]
  - Anal fissure [Not Recovered/Not Resolved]
  - Eosinophil count increased [Not Recovered/Not Resolved]

NARRATIVE: CASE EVENT DATE: 20130627
